FAERS Safety Report 5218511-8 (Version None)
Quarter: 2006Q4

REPORT INFORMATION
  Report Type: 
  Country: None (occurrence: None)
  Receive Date: 20061121
  Receipt Date: 20061004
  Transmission Date: 20070319
  Serious: No
  Sender: FDA-Public Use
  Company Number: TPA2006A01729

PATIENT
  Age: 47 Year
  Sex: Female
  Weight: 92.9874 kg

DRUGS (6)
  1. ROZEREM [Suspect]
     Indication: INSOMNIA
     Dosage: 8 MG, QHS, PER ORAL
     Route: 048
     Dates: start: 20061003
  2. HYDROCHLOROTHIAZIDE [Concomitant]
  3. LEXAPRO [Concomitant]
  4. TETRACYCLINE [Concomitant]
  5. LEVOXYL [Concomitant]
  6. TRAZODONE HCL [Concomitant]

REACTIONS (3)
  - NAUSEA [None]
  - POOR QUALITY SLEEP [None]
  - VOMITING [None]
